FAERS Safety Report 18972027 (Version 1)
Quarter: 2021Q1

REPORT INFORMATION
  Report Type: Spontaneous
  Country: CR (occurrence: CR)
  Receive Date: 20210305
  Receipt Date: 20210305
  Transmission Date: 20210420
  Serious: Yes (Other)
  Sender: FDA-Public Use
  Company Number: CR-SA-2021SA065651

PATIENT
  Sex: Female

DRUGS (1)
  1. ARAVA [Suspect]
     Active Substance: LEFLUNOMIDE

REACTIONS (3)
  - Exposure during pregnancy [Unknown]
  - Contraindicated product administered [Unknown]
  - Abortion [Unknown]

NARRATIVE: CASE EVENT DATE: 20210209
